FAERS Safety Report 8463405-8 (Version None)
Quarter: 2012Q2

REPORT INFORMATION
  Report Type: 
  Country: None (occurrence: None)
  Receive Date: 20120625
  Receipt Date: 20120620
  Transmission Date: 20120825
  Serious: No
  Sender: FDA-Public Use
  Company Number: US-BAYER-2012-061774

PATIENT
  Age: 81 Year
  Sex: Female
  Weight: 82 kg

DRUGS (5)
  1. METFORMIN HCL [Concomitant]
  2. NEXIUM [Concomitant]
  3. SYNTHROID [Concomitant]
  4. ALEVE (CAPLET) [Suspect]
     Indication: PAIN
     Dosage: 1 U, QOD
     Route: 048
     Dates: start: 20120530, end: 20120618
  5. TOPROL-XL [Concomitant]

REACTIONS (1)
  - NO ADVERSE EVENT [None]
